FAERS Safety Report 5006341-1 (Version None)
Quarter: 2006Q2

REPORT INFORMATION
  Report Type: 
  Country: None (occurrence: None)
  Receive Date: 20060519
  Receipt Date: 20060508
  Transmission Date: 20061013
  Serious: Yes (Congenital Anomaly)
  Sender: FDA-Public Use
  Company Number: CN-JNJFOC-20060501864

PATIENT
  Sex: Male

DRUGS (1)
  1. VERMOX [Suspect]

REACTIONS (2)
  - FACIAL DYSMORPHISM [None]
  - MENTAL DISABILITY [None]
